FAERS Safety Report 19984633 (Version 1)
Quarter: 2021Q4

REPORT INFORMATION
  Report Type: Spontaneous
  Country: US (occurrence: US)
  Receive Date: 20211021
  Receipt Date: 20211021
  Transmission Date: 20220303
  Serious: Yes (Hospitalization)
  Sender: FDA-Public Use
  Company Number: None

PATIENT
  Age: 86 Year
  Sex: Female

DRUGS (9)
  1. ESBRIET [Suspect]
     Active Substance: PIRFENIDONE
     Indication: Pulmonary fibrosis
     Route: 048
     Dates: start: 20190208
  2. ASPIRIN LOW TAB 81MG EC [Concomitant]
  3. CALCIUM CIT/TAB VIT D [Concomitant]
  4. LOSARTAN POT TAB 100MG [Concomitant]
  5. LOVASTATIN TAB 40MG [Concomitant]
  6. METOPROL SUC TAB 25MG ER [Concomitant]
  7. PREDNISONE [Concomitant]
     Active Substance: PREDNISONE
  8. VITAMIN B12 TAB 100MCG [Concomitant]
  9. WARFARIN TAB 5MG [Concomitant]

REACTIONS (1)
  - Unevaluable event [None]

NARRATIVE: CASE EVENT DATE: 20211019
